FAERS Safety Report 19350186 (Version 1)
Quarter: 2021Q2

REPORT INFORMATION
  Report Type: Spontaneous
  Country: US (occurrence: US)
  Receive Date: 20210601
  Receipt Date: 20210601
  Transmission Date: 20210717
  Serious: No
  Sender: FDA-Public Use
  Company Number: None

PATIENT
  Age: 61 Year
  Sex: Male
  Weight: 106 kg

DRUGS (1)
  1. RIVAROXABAN (RIVAROXABAN 20MG TAB) [Suspect]
     Active Substance: RIVAROXABAN
     Indication: PULMONARY EMBOLISM
     Route: 048
     Dates: start: 20200812, end: 20201018

REACTIONS (4)
  - Pancreatitis haemorrhagic [None]
  - Abdominal pain [None]
  - Pancreatitis acute [None]
  - Haemoperitoneum [None]

NARRATIVE: CASE EVENT DATE: 20201018
